FAERS Safety Report 18061128 (Version 2)
Quarter: 2020Q3

REPORT INFORMATION
  Report Type: Report from Study
  Country: FI (occurrence: FI)
  Receive Date: 20200723
  Receipt Date: 20200819
  Transmission Date: 20201103
  Serious: Yes (Hospitalization, Other)
  Sender: FDA-Public Use
  Company Number: FI-MYLANLABS-2020M1066436

PATIENT
  Age: 50 Year
  Sex: Female

DRUGS (11)
  1. ATORVASTATIN RATIOPHARM [Concomitant]
     Active Substance: ATORVASTATIN
     Dosage: 1 DOSE, ONCE PER DAY
  2. FUNGORIN [Concomitant]
     Active Substance: TERBINAFINE HYDROCHLORIDE
     Dosage: 1 DOSE, ONCE PER DAY
  3. AGIOCUR                            /06292501/ [Concomitant]
     Dosage: AS NEEDED
  4. BISOPROLOL SANDOZ [Concomitant]
     Active Substance: BISOPROLOL
     Dosage: HALF A DOSE, QD
  5. SOMAC [Concomitant]
     Active Substance: PANTOPRAZOLE SODIUM
     Dosage: 1 DOSE, ONCE PER DAY
  6. KEFALEX [Concomitant]
     Active Substance: CEPHALEXIN
     Dosage: 1 DOSE, THREE TIMES PER DAY
  7. LEPONEX [Suspect]
     Active Substance: CLOZAPINE
     Indication: SCHIZOPHRENIA
     Dosage: 150 MILLIGRAM, QD
     Route: 048
     Dates: start: 20200608, end: 20200802
  8. BURANA [Concomitant]
     Active Substance: IBUPROFEN
     Dosage: 1 DOSE, 1 TO 3 TIMES PER DAY
  9. PANADOL FORTE                      /00020001/ [Concomitant]
     Active Substance: ACETAMINOPHEN
     Dosage: 1 DOSE, 1 TO 3 TIME PER DAY
  10. PEGORION [Concomitant]
     Active Substance: POLYETHYLENE GLYCOL 4000
     Dosage: 1 DOSE PER DAY, IN THE EVENING
  11. PERATSIN [Concomitant]
     Active Substance: PERPHENAZINE
     Dosage: 0.5+0+1 DOSES, PER DAY

REACTIONS (9)
  - Myocarditis [Recovered/Resolved]
  - Infection [Recovered/Resolved]
  - Electrocardiogram ST segment elevation [Recovered/Resolved]
  - Electrocardiogram T wave inversion [Not Recovered/Not Resolved]
  - Troponin T increased [Recovered/Resolved]
  - C-reactive protein increased [Recovered/Resolved]
  - Chest pain [Unknown]
  - Dyspnoea [Unknown]
  - Eosinophilia [Recovered/Resolved]

NARRATIVE: CASE EVENT DATE: 2020
